FAERS Safety Report 13859610 (Version 1)
Quarter: 2017Q3

REPORT INFORMATION
  Report Type: Spontaneous
  Country: US (occurrence: US)
  Receive Date: 20170811
  Receipt Date: 20170811
  Transmission Date: 20171127
  Serious: Yes (Life-Threatening, Hospitalization)
  Sender: FDA-Public Use
  Company Number: None

PATIENT
  Age: 16 Year
  Sex: Female
  Weight: 63 kg

DRUGS (3)
  1. CLEARLAX [Suspect]
     Active Substance: POLYETHYLENE GLYCOL 3350
     Indication: CONSTIPATION
     Dosage: ?          QUANTITY:2 CAPFULS;?
     Route: 048
     Dates: start: 20170221, end: 20170712
  2. MELATONIN [Concomitant]
     Active Substance: MELATONIN
  3. COLACE [Suspect]
     Active Substance: DOCUSATE SODIUM
     Indication: CONSTIPATION
     Dosage: ?          QUANTITY:1 CAPSULE(S);?
     Route: 048
     Dates: start: 20170620, end: 20170721

REACTIONS (12)
  - Abdominal distension [None]
  - Gallbladder disorder [None]
  - Suicide attempt [None]
  - Constipation [None]
  - Abdominal pain upper [None]
  - Insomnia [None]
  - Aggression [None]
  - Anger [None]
  - Adrenal neoplasm [None]
  - Depression [None]
  - Gastritis [None]
  - Overdose [None]

NARRATIVE: CASE EVENT DATE: 20170710
